FAERS Safety Report 9448421 (Version 1)
Quarter: 2013Q3

REPORT INFORMATION
  Report Type: Report from Study
  Country: SE (occurrence: SE)
  Receive Date: 20130808
  Receipt Date: 20130808
  Transmission Date: 20140515
  Serious: Yes (Other)
  Sender: FDA-Public Use
  Company Number: PHHY2013SE082841

PATIENT
  Sex: Male

DRUGS (3)
  1. SOMATROPIN [Suspect]
     Indication: GROWTH HORMONE DEFICIENCY
     Dosage: 0.2 MG, QD
     Route: 058
     Dates: start: 20090414
  2. CITALOPRAM [Concomitant]
     Dosage: 40 MG, QD
     Route: 048
     Dates: start: 2010
  3. LEVOTHYROXIN [Concomitant]
     Dosage: 50 MG, QD
     Route: 048
     Dates: start: 2013

REACTIONS (3)
  - Pituitary hypoplasia [Unknown]
  - Erectile dysfunction [Unknown]
  - Exposure via father [Unknown]
